FAERS Safety Report 5073176-3 (Version None)
Quarter: 2006Q3

REPORT INFORMATION
  Report Type: 
  Country: None (occurrence: None)
  Receive Date: 20060802
  Receipt Date: 20060801
  Transmission Date: 20061208
  Serious: No
  Sender: FDA-Public Use
  Company Number: US-2005-023441

PATIENT
  Age: 39 Year
  Sex: Female

DRUGS (1)
  1. YASMIN [Suspect]
     Indication: PREMENSTRUAL SYNDROME
     Dosage: 1 TAB (S), 1X/DAY, ORAL
     Route: 048
     Dates: start: 20020101, end: 20050101

REACTIONS (8)
  - ACNE [None]
  - DANDRUFF [None]
  - DIZZINESS [None]
  - DRY SKIN [None]
  - HYPOAESTHESIA ORAL [None]
  - MENORRHAGIA [None]
  - OVARIAN CYST [None]
  - SLUGGISHNESS [None]
